FAERS Safety Report 16221173 (Version 2)
Quarter: 2019Q2

REPORT INFORMATION
  Report Type: Other
  Country: PT (occurrence: PT)
  Receive Date: 20190422
  Receipt Date: 20190508
  Transmission Date: 20190711
  Serious: Yes (Other)
  Sender: FDA-Public Use
  Company Number: PT-CELLTRION INC.-2019PT020450

PATIENT

DRUGS (1)
  1. REMSIMA [Suspect]
     Active Substance: INFLIXIMAB
     Indication: CROHN^S DISEASE
     Dates: start: 201809

REACTIONS (6)
  - Cystitis [Unknown]
  - Vulvovaginal candidiasis [Unknown]
  - Tonsillitis [Unknown]
  - Anal abscess [Unknown]
  - Drug specific antibody present [Unknown]
  - Dermoid cyst [Unknown]
